FAERS Safety Report 7333523-6 (Version None)
Quarter: 2011Q1

REPORT INFORMATION
  Report Type: 
  Country: None (occurrence: None)
  Receive Date: 20110304
  Receipt Date: 20110228
  Transmission Date: 20110831
  Serious: Yes (Life-Threatening, Hospitalization)
  Sender: FDA-Public Use
  Company Number: US-US-EMD SERONO, INC.-7005563

PATIENT
  Sex: Female
  Weight: 90 kg

DRUGS (2)
  1. METOPROLOL [Concomitant]
     Indication: HYPERTENSION
     Dates: start: 20080101
  2. REBIF [Suspect]
     Indication: MULTIPLE SCLEROSIS
     Route: 058
     Dates: start: 20100315, end: 20101115

REACTIONS (16)
  - INFLUENZA LIKE ILLNESS [None]
  - RENAL INJURY [None]
  - SEPSIS [None]
  - PNEUMOTHORAX [None]
  - STREPTOCOCCAL SEPSIS [None]
  - NAUSEA [None]
  - INJECTION SITE REACTION [None]
  - URINARY TRACT INFECTION [None]
  - IMPAIRED GASTRIC EMPTYING [None]
  - RENAL FAILURE [None]
  - MUSCULAR WEAKNESS [None]
  - VOMITING [None]
  - PNEUMONIA ASPIRATION [None]
  - PERONEAL NERVE PALSY [None]
  - INJECTION SITE PAIN [None]
  - ANAEMIA [None]
